FAERS Safety Report 17269345 (Version 1)
Quarter: 2020Q1

REPORT INFORMATION
  Report Type: Report from Study
  Country: DE (occurrence: DE)
  Receive Date: 20200114
  Receipt Date: 20200114
  Transmission Date: 20200409
  Serious: Yes (Congenital Anomaly)
  Sender: FDA-Public Use
  Company Number: DE-ASTRAZENECA-2019SF88438

PATIENT
  Sex: Female

DRUGS (5)
  1. BUDESONIDE. [Suspect]
     Active Substance: BUDESONIDE
     Route: 064
  2. PARACETAMOL [Suspect]
     Active Substance: ACETAMINOPHEN
     Indication: INFLAMMATORY BOWEL DISEASE
     Route: 064
  3. FORMOTEROL [Suspect]
     Active Substance: FORMOTEROL
     Route: 064
  4. MESALAZINE [Suspect]
     Active Substance: MESALAMINE
     Route: 064
  5. SALBUTAMOL [Suspect]
     Active Substance: ALBUTEROL
     Route: 064

REACTIONS (1)
  - Patent ductus arteriosus [Recovered/Resolved]
